FAERS Safety Report 6465632-8 (Version None)
Quarter: 2009Q4

REPORT INFORMATION
  Report Type: 
  Country: None (occurrence: None)
  Receive Date: 20091124
  Receipt Date: 20091112
  Transmission Date: 20100525
  Serious: Yes (Other)
  Sender: FDA-Public Use
  Company Number: 230227J09BRA

PATIENT
  Age: 39 Year
  Sex: Female

DRUGS (9)
  1. REBIF [Suspect]
     Indication: MULTIPLE SCLEROSIS
     Dosage: 44 MCG, 3 IN 1 WEEKS
     Dates: start: 20080625
  2. PHENYTOIN (PHENYTOIN /00017401/) [Concomitant]
  3. BALOR RETARD (DILTIAZEM HYDROCHLORIDE) [Concomitant]
  4. TOPIRAMATE [Concomitant]
  5. SODIUM DYPIRONE (METAMIZOLE SODIUM) [Concomitant]
  6. OMEPRAZOLE [Concomitant]
  7. ALUMINUM HYDROXIDE TAB [Concomitant]
  8. DRAMIN (DIMENHYDRINATE /00019501/) [Concomitant]
  9. HYOSCINE HBR HYT [Concomitant]

REACTIONS (7)
  - ABDOMINAL PAIN UPPER [None]
  - BLOOD PRESSURE INCREASED [None]
  - DEHYDRATION [None]
  - HEADACHE [None]
  - MUSCULOSKELETAL PAIN [None]
  - SWELLING FACE [None]
  - VOMITING [None]
